FAERS Safety Report 8108490-8 (Version None)
Quarter: 2012Q1

REPORT INFORMATION
  Report Type: 
  Country: None (occurrence: None)
  Receive Date: 20120202
  Receipt Date: 20120125
  Transmission Date: 20120608
  Serious: Yes (Hospitalization, Other)
  Sender: FDA-Public Use
  Company Number: FR-PFIZER INC-2011237613

PATIENT
  Age: 71 Year
  Sex: Male

DRUGS (13)
  1. FURADANTIN [Suspect]
     Indication: PROSTATITIS
     Dosage: 50 MG, UNK
     Dates: start: 20110701, end: 20110701
  2. PREDNISONE TAB [Suspect]
     Dosage: 50 MG/DAY
  3. BISOPROLOL FUMARATE [Suspect]
     Dosage: 2.5 MG, 1X/DAY IN THE MORNING
     Dates: end: 20110701
  4. ATORVASTATIN [Suspect]
     Dosage: 40 MG, 1X/DAY AT NIGHT
     Route: 048
     Dates: end: 20110701
  5. IMURAN [Suspect]
     Dosage: 150 MG, 1X/DAY AT LUNCH TIME
     Route: 048
     Dates: start: 20110501, end: 20110701
  6. ASPIRIN [Concomitant]
     Dosage: 160 MG, 1X/DAY AT LUNCH TIME
  7. NEXIUM [Concomitant]
     Dosage: 40 MG/DAY
  8. RAMIPRIL [Suspect]
     Dosage: 1.5 MG, 1X/DAY IN THE MORNING
     Dates: end: 20110701
  9. PRINCI-B [Concomitant]
     Dosage: 1 DF, 2X/DAY IN THE MORNING AND AT LUNCH TIME
  10. ACETAMINOPHEN [Concomitant]
     Dosage: 1G, SINGLE
     Dates: start: 20110709
  11. LANTUS [Concomitant]
     Dosage: 10 IU IN THE MORNING
  12. CALCIUM CARBONATE [Concomitant]
     Dosage: 500 MG, 2X/DAY 1 IN THE MORNING AND AT LUNCH TIME
  13. ACETAMINOPHEN [Concomitant]
     Dosage: 500 MG, 1TO2 TABLETS, 4X/DAY

REACTIONS (1)
  - HEPATITIS [None]
